FAERS Safety Report 18430801 (Version 1)
Quarter: 2020Q4

REPORT INFORMATION
  Report Type: Spontaneous
  Country: US (occurrence: US)
  Receive Date: 20201026
  Receipt Date: 20201026
  Transmission Date: 20210114
  Serious: Yes (Life-Threatening)
  Sender: FDA-Public Use
  Company Number: None

PATIENT
  Age: 57 Year
  Sex: Female
  Weight: 112.5 kg

DRUGS (17)
  1. TRAZODONE [Concomitant]
     Active Substance: TRAZODONE HYDROCHLORIDE
  2. REQUIP [Concomitant]
     Active Substance: ROPINIROLE HYDROCHLORIDE
  3. ATROVENT SPRAY [Concomitant]
  4. ENTRESTO [Concomitant]
     Active Substance: SACUBITRIL\VALSARTAN
  5. ASPIRIN. [Concomitant]
     Active Substance: ASPIRIN
  6. PHENERGAN [Concomitant]
     Active Substance: PROMETHAZINE HYDROCHLORIDE
  7. ALLEGES D [Concomitant]
  8. ELIQUIS [Concomitant]
     Active Substance: APIXABAN
  9. SINGULAIR [Concomitant]
     Active Substance: MONTELUKAST SODIUM
  10. PLAVIX [Concomitant]
     Active Substance: CLOPIDOGREL BISULFATE
  11. LIPITOR [Concomitant]
     Active Substance: ATORVASTATIN CALCIUM
  12. PHENDIMETRAZINE. [Concomitant]
     Active Substance: PHENDIMETRAZINE TARTRATE
  13. NAPROXEN. [Concomitant]
     Active Substance: NAPROXEN
  14. TIZANIDINE HCL [Suspect]
     Active Substance: TIZANIDINE HYDROCHLORIDE
     Indication: BACK PAIN
     Dosage: ?          QUANTITY:90 TABLET(S);?
     Route: 048
     Dates: start: 20201021, end: 20201021
  15. COREG [Concomitant]
     Active Substance: CARVEDILOL
  16. FLONASE [Concomitant]
     Active Substance: FLUTICASONE PROPIONATE
  17. NORCO [Concomitant]
     Active Substance: ACETAMINOPHEN\HYDROCODONE BITARTRATE

REACTIONS (5)
  - Swollen tongue [None]
  - Lip swelling [None]
  - Oral pain [None]
  - Fatigue [None]
  - Oral mucosal blistering [None]

NARRATIVE: CASE EVENT DATE: 20201023
